FAERS Safety Report 5218062-0 (Version None)
Quarter: 2007Q1

REPORT INFORMATION
  Report Type: 
  Country: None (occurrence: None)
  Receive Date: 20061130
  Receipt Date: 20060807
  Transmission Date: 20070707
  Serious: Yes (Other)
  Sender: FDA-Public Use
  Company Number: US_010260734

PATIENT
  Age: 30 Year
  Sex: Female
  Weight: 138.6 kg

DRUGS (3)
  1. ZYPREXA [Suspect]
     Indication: BIPOLAR DISORDER
     Dosage: SEE IMAGE
     Dates: start: 19980101, end: 20060215
  2. ZYPREXA ZYDIS [Suspect]
     Indication: BIPOLAR DISORDER
     Dosage: 20 MG, DAILY (1/D), ORAL
     Route: 048
  3. LITHIUM CARBONATE [Concomitant]

REACTIONS (10)
  - BLOOD CHOLESTEROL ABNORMAL [None]
  - BLOOD TRIGLYCERIDES INCREASED [None]
  - DIABETES MELLITUS NON-INSULIN-DEPENDENT [None]
  - GLYCOSYLATED HAEMOGLOBIN INCREASED [None]
  - HEADACHE [None]
  - HYPOTONIA [None]
  - METABOLIC DISORDER [None]
  - OBESITY [None]
  - TONGUE BITING [None]
  - WEIGHT INCREASED [None]
